FAERS Safety Report 7134759-X (Version None)
Quarter: 2010Q4

REPORT INFORMATION
  Report Type: 
  Country: None (occurrence: None)
  Receive Date: 20101203
  Receipt Date: 20101201
  Transmission Date: 20110411
  Serious: Yes (Other)
  Sender: FDA-Public Use
  Company Number: PK-ROCHE-744079

PATIENT
  Sex: Male
  Weight: 85 kg

DRUGS (1)
  1. PEGINTERFERON ALFA-2A [Suspect]
     Dosage: DATE OF LAST DOSE PRIOR TO SAE:17 NOVEMBER 2010. PERMANENTLY DISCONTINUED
     Route: 058
     Dates: start: 20100509, end: 20101123

REACTIONS (1)
  - ASCITES [None]
